FAERS Safety Report 26197560 (Version 1)
Quarter: 2025Q4

REPORT INFORMATION
  Report Type: Spontaneous
  Country: US (occurrence: US)
  Receive Date: 20251224
  Receipt Date: 20251224
  Transmission Date: 20260118
  Serious: No
  Sender: SANOFI AVENTIS
  Company Number: US-SA-2025SA383865

PATIENT
  Sex: Female
  Weight: 89.55 kg

DRUGS (3)
  1. DUPIXENT [Suspect]
     Active Substance: DUPILUMAB
     Indication: Neurodermatitis
     Dosage: 1.000DF QOW
     Route: 058
  2. TRIAMCINOLONE ACETONIDE [Concomitant]
     Active Substance: TRIAMCINOLONE ACETONIDE
  3. CELEBREX [Concomitant]
     Active Substance: CELECOXIB

REACTIONS (4)
  - Pain in extremity [Unknown]
  - Skin lesion [Unknown]
  - Pain of skin [Unknown]
  - Arthralgia [Unknown]
